FAERS Safety Report 9518219 (Version 1)
Quarter: 2013Q3

REPORT INFORMATION
  Report Type: Other
  Country: JP (occurrence: JP)
  Receive Date: 20130912
  Receipt Date: 20130912
  Transmission Date: 20140515
  Serious: Yes (Other)
  Sender: FDA-Public Use
  Company Number: JP-ACTELION-A-CH2013-88146

PATIENT
  Age: 64 Year
  Sex: Male

DRUGS (4)
  1. TRACLEER [Suspect]
     Indication: PULMONARY ARTERIAL HYPERTENSION
     Dosage: UNK
     Route: 048
  2. OXYGEN [Concomitant]
  3. BERAPROST [Concomitant]
  4. SILDENAFIL [Concomitant]

REACTIONS (3)
  - Pulmonary hypertension [Recovering/Resolving]
  - Condition aggravated [Recovering/Resolving]
  - Angioplasty [Recovering/Resolving]
